FAERS Safety Report 8284929 (Version 20)
Quarter: 2014Q2

REPORT INFORMATION
  Report Type: Spontaneous
  Country: US (occurrence: US)
  Receive Date: 20111212
  Receipt Date: 20140408
  Transmission Date: 20141212
  Serious: Yes (Disabling, Other)
  Sender: FDA-Public Use
  Company Number: PHEH2011US011030

PATIENT
  Sex: Female
  Weight: 72.12 kg

DRUGS (17)
  1. AREDIA [Suspect]
     Indication: PLASMA CELL MYELOMA
     Route: 041
     Dates: start: 2001
  2. AREDIA [Suspect]
  3. ZOMETA [Suspect]
     Indication: PLASMA CELL MYELOMA
     Route: 041
     Dates: start: 2001
  4. ZOMETA [Suspect]
     Dosage: 4 MG, QMO
     Dates: start: 2002
  5. ZOMETA [Suspect]
     Dates: start: 200704, end: 2008
  6. THALIDOMIDE [Concomitant]
     Dosage: 100 MG, BID
     Route: 048
     Dates: start: 200210
  7. THALIDOMIDE [Concomitant]
     Dosage: 150 MG, QD
     Route: 048
     Dates: start: 200608
  8. THALIDOMIDE [Concomitant]
     Dosage: 100 MG, QD
     Route: 048
     Dates: start: 200610
  9. THALIDOMIDE [Concomitant]
     Dosage: 50 MG, QD
  10. ACYCLOVIR [Concomitant]
     Dosage: 400 MG, BID
  11. ACYCLOVIR [Concomitant]
     Dosage: 800 MG, 5QD
  12. NEURONTIN [Concomitant]
     Dosage: 400 MG, TID
     Route: 048
     Dates: end: 20070211
  13. NEURONTIN [Concomitant]
     Dosage: 400 MG, BID
  14. ORTHOVISC [Concomitant]
     Indication: ARTHRALGIA
  15. ALBUTEROL [Concomitant]
  16. DECADRAN [Concomitant]
     Indication: PLASMA CELL MYELOMA
  17. MELPHALAN [Concomitant]
     Indication: PLASMA CELL MYELOMA
     Dates: start: 200202

REACTIONS (122)
  - Osteonecrosis of jaw [Unknown]
  - Pain [Unknown]
  - Injury [Unknown]
  - Mastication disorder [Unknown]
  - Emotional distress [Unknown]
  - Anxiety [Unknown]
  - Life expectancy shortened [Unknown]
  - Anhedonia [Unknown]
  - Discomfort [Unknown]
  - Deformity [Unknown]
  - Toothache [Unknown]
  - Tooth abscess [Unknown]
  - Osteomyelitis [Unknown]
  - Osteolysis [Unknown]
  - Exposed bone in jaw [Unknown]
  - Primary sequestrum [Unknown]
  - Migraine [Unknown]
  - Nasal disorder [Unknown]
  - Sinus disorder [Unknown]
  - Upper respiratory tract infection [Unknown]
  - Acute tonsillitis [Unknown]
  - Pharyngitis [Unknown]
  - Osteoarthritis [Unknown]
  - Herpes zoster [Unknown]
  - Amnesia [Unknown]
  - Varicose vein [Unknown]
  - Intervertebral disc displacement [Unknown]
  - Meniscus injury [Unknown]
  - Patellofemoral pain syndrome [Unknown]
  - Joint effusion [Unknown]
  - Bone cyst [Unknown]
  - Spinal column stenosis [Unknown]
  - Vertebral foraminal stenosis [Unknown]
  - Dysfunctional uterine bleeding [Unknown]
  - Cervical dysplasia [Unknown]
  - Intervertebral disc protrusion [Unknown]
  - Ligament rupture [Unknown]
  - Lumbar radiculopathy [Unknown]
  - Lymphadenopathy [Recovered/Resolved]
  - Neuropathy peripheral [Unknown]
  - Tooth disorder [Unknown]
  - Upper-airway cough syndrome [Unknown]
  - Haematemesis [Unknown]
  - Bronchitis [Unknown]
  - Paraproteinaemia [Unknown]
  - Pain in jaw [Unknown]
  - Oropharyngeal pain [Unknown]
  - Systemic lupus erythematosus [Unknown]
  - Lumbar spinal stenosis [Unknown]
  - Intervertebral disc degeneration [Unknown]
  - Tonsillar hypertrophy [Unknown]
  - Synovial cyst [Unknown]
  - Arthropathy [Unknown]
  - Bone marrow oedema [Unknown]
  - Chondrosis [Unknown]
  - Ovarian cyst [Unknown]
  - Localised infection [Unknown]
  - Pneumonia [Unknown]
  - Abdominal hernia [Unknown]
  - Diastasis recti abdominis [Unknown]
  - Oral disorder [Unknown]
  - Clostridium difficile colitis [Unknown]
  - Staphylococcal bacteraemia [Unknown]
  - Sciatica [Unknown]
  - Deafness [Unknown]
  - Cerumen impaction [Unknown]
  - Malignant melanoma [Unknown]
  - Second primary malignancy [Unknown]
  - Anisometropia [Unknown]
  - Bone cancer [Unknown]
  - Fibroadenoma of breast [Unknown]
  - Breast fibrosis [Unknown]
  - Breast mass [Unknown]
  - Bone pain [Unknown]
  - Knee deformity [Unknown]
  - Chondropathy [Unknown]
  - Joint stiffness [Unknown]
  - Ecchymosis [Unknown]
  - Palpitations [Unknown]
  - Respiratory tract congestion [Unknown]
  - Nasal congestion [Unknown]
  - Productive cough [Unknown]
  - Rhonchi [Unknown]
  - Pharyngeal erythema [Unknown]
  - Erythroplasia [Unknown]
  - Joint dislocation [Unknown]
  - Seborrhoeic keratosis [Unknown]
  - Pigmentation disorder [Unknown]
  - Neutropenia [Unknown]
  - Vision blurred [Unknown]
  - Faeces discoloured [Unknown]
  - Aphagia [Unknown]
  - Gingival bleeding [Unknown]
  - Epistaxis [Unknown]
  - Mouth ulceration [Unknown]
  - Muscular weakness [Unknown]
  - Anaemia [Unknown]
  - Rhinitis allergic [Unknown]
  - Sinus congestion [Unknown]
  - Abdominal pain [Unknown]
  - Myalgia [Unknown]
  - Photosensitivity reaction [Unknown]
  - Gait disturbance [Unknown]
  - Dyspnoea [Unknown]
  - Arthralgia [Unknown]
  - Back pain [Recovered/Resolved]
  - Dry mouth [Not Recovered/Not Resolved]
  - Muscle spasms [Recovering/Resolving]
  - Paraesthesia [Unknown]
  - Hypoaesthesia [Not Recovered/Not Resolved]
  - Cough [Not Recovered/Not Resolved]
  - Fatigue [Unknown]
  - Vomiting [Unknown]
  - Pyrexia [Unknown]
  - Nausea [Unknown]
  - Peripheral swelling [Unknown]
  - Abdominal distension [Unknown]
  - Rhinorrhoea [Unknown]
  - Headache [Unknown]
  - Diarrhoea [Unknown]
  - Abnormal loss of weight [Unknown]
  - Constipation [Unknown]
